FAERS Safety Report 23027942 (Version 1)
Quarter: 2023Q4

REPORT INFORMATION
  Report Type: Spontaneous
  Country: US (occurrence: None)
  Receive Date: 20231003
  Receipt Date: 20231003
  Transmission Date: 20240109
  Serious: Yes (unspecified)
  Sender: FDA-Public Use
  Company Number: None

PATIENT
  Age: 39 Year
  Sex: Female
  Weight: 82 kg

DRUGS (2)
  1. ENBREL [Suspect]
     Active Substance: ETANERCEPT
     Indication: Rheumatoid arthritis
     Dates: start: 20230509, end: 20230919
  2. ENBREL [Concomitant]
     Active Substance: ETANERCEPT
     Dates: start: 20230509, end: 20230919

REACTIONS (5)
  - Chest pain [None]
  - Palpitations [None]
  - Therapy interrupted [None]
  - Drug rechallenge positive [None]
  - Symptom recurrence [None]

NARRATIVE: CASE EVENT DATE: 20231003
